FAERS Safety Report 5599348-7 (Version None)
Quarter: 2008Q1

REPORT INFORMATION
  Report Type: 
  Country: None (occurrence: None)
  Receive Date: 20080117
  Receipt Date: 20080108
  Transmission Date: 20080703
  Serious: Yes (Other)
  Sender: FDA-Public Use
  Company Number: 2008-00192

PATIENT
  Age: 11 Year
  Sex: Female

DRUGS (1)
  1. NORINYL 1+50 21-DAY [Suspect]
     Indication: MENORRHAGIA
     Dosage: SINGLE, DAILY DOSE, ORAL
     Route: 048
     Dates: start: 20070101, end: 20070101

REACTIONS (2)
  - ENCEPHALOPATHY [None]
  - PSYCHOTIC DISORDER [None]
